FAERS Safety Report 7360741-3 (Version None)
Quarter: 2011Q1

REPORT INFORMATION
  Report Type: 
  Country: None (occurrence: None)
  Receive Date: 20110318
  Receipt Date: 20110309
  Transmission Date: 20110831
  Serious: Yes (Hospitalization, Other)
  Sender: FDA-Public Use
  Company Number: US-BAXTER-2011BH003847

PATIENT
  Age: 75 Year
  Sex: Male

DRUGS (6)
  1. EXTRANEAL [Suspect]
     Indication: RENAL FAILURE CHRONIC
     Route: 033
     Dates: start: 20090819, end: 20110131
  2. DIANEAL [Suspect]
     Indication: RENAL FAILURE CHRONIC
     Route: 033
     Dates: end: 20110131
  3. DIANEAL [Suspect]
     Indication: RENAL FAILURE CHRONIC
     Route: 033
     Dates: end: 20110201
  4. DIANEAL [Suspect]
     Route: 033
     Dates: start: 20110131, end: 20110201
  5. LASIX [Concomitant]
     Indication: PRODUCT USED FOR UNKNOWN INDICATION
     Route: 048
     Dates: end: 20110131
  6. AMIODARONE HCL [Concomitant]
     Indication: PRODUCT USED FOR UNKNOWN INDICATION
     Route: 048
     Dates: start: 20110211, end: 20110214

REACTIONS (8)
  - DEHYDRATION [None]
  - FUNGAL PERITONITIS [None]
  - WEIGHT DECREASED [None]
  - PERITONITIS BACTERIAL [None]
  - DIALYSIS [None]
  - JAUNDICE [None]
  - HEPATIC FUNCTION ABNORMAL [None]
  - PERITONEAL EFFLUENT ABNORMAL [None]
